FAERS Safety Report 13307584 (Version 1)
Quarter: 2017Q1

REPORT INFORMATION
  Report Type: Spontaneous
  Country: US (occurrence: US)
  Receive Date: 20170308
  Receipt Date: 20170308
  Transmission Date: 20170428
  Serious: No
  Sender: FDA-Public Use
  Company Number: US-LUNDBECK-DKLU2026827

PATIENT
  Age: 75 Year
  Sex: Female

DRUGS (3)
  1. NORTHERA [Suspect]
     Active Substance: DROXIDOPA
     Dosage: SCHEDULE B AND TITRATING
     Route: 065
     Dates: start: 20170214
  2. NORTHERA [Suspect]
     Active Substance: DROXIDOPA
     Indication: AUTONOMIC NEUROPATHY
     Dosage: SCHEDULE B AND TITRATING
     Route: 065
     Dates: start: 20170214
  3. NORTHERA [Suspect]
     Active Substance: DROXIDOPA
     Indication: ORTHOSTATIC HYPOTENSION
     Dosage: SCHEDULE B AND TITRATING
     Route: 065
     Dates: start: 20170214

REACTIONS (6)
  - Blood pressure increased [Unknown]
  - Tremor [Unknown]
  - Crying [Unknown]
  - Disorientation [Unknown]
  - Dizziness [Unknown]
  - Headache [Unknown]

NARRATIVE: CASE EVENT DATE: 20170219
